FAERS Safety Report 5043745-5 (Version None)
Quarter: 2006Q3

REPORT INFORMATION
  Report Type: 
  Country: None (occurrence: None)
  Receive Date: 20060706
  Receipt Date: 20060609
  Transmission Date: 20061208
  Serious: Yes (Other)
  Sender: FDA-Public Use
  Company Number: SE-NOVOPROD-254012

PATIENT
  Age: 71 Year
  Sex: Male

DRUGS (9)
  1. NOVOLOG MIX 70/30 [Suspect]
     Indication: DIABETES MELLITUS INSULIN-DEPENDENT
  2. HUMIRA [Suspect]
  3. OXYCONTIN [Concomitant]
  4. OMEPRAZOL                          /00661201/ [Concomitant]
  5. METHOTREXAT                        /00113801/ [Concomitant]
  6. FOLACIN [Concomitant]
  7. ALVEDON [Concomitant]
  8. TIBINIDE [Concomitant]
  9. TROMBYL [Concomitant]

REACTIONS (3)
  - BLOOD CREATININE INCREASED [None]
  - HYPOGLYCAEMIA [None]
  - RHABDOMYOLYSIS [None]
